FAERS Safety Report 25018843 (Version 1)
Quarter: 2025Q1

REPORT INFORMATION
  Report Type: Spontaneous
  Country: US (occurrence: US)
  Receive Date: 20250227
  Receipt Date: 20250227
  Transmission Date: 20250408
  Serious: No
  Sender: AVADEL CNS PHARMACEUTICALS, LLC
  Company Number: US-AVADEL CNS PHARMACEUTICALS, LLC-2025AVA00103

PATIENT
  Sex: Female

DRUGS (35)
  1. LUMRYZ [Suspect]
     Active Substance: SODIUM OXYBATE
     Indication: Narcolepsy
     Dosage: 6 G, ONCE NIGHTLY
     Dates: start: 202401
  2. LUMRYZ [Suspect]
     Active Substance: SODIUM OXYBATE
     Indication: Cataplexy
  3. ALPRAZOLAM [Concomitant]
     Active Substance: ALPRAZOLAM
  4. SUNOSI [Concomitant]
     Active Substance: SOLRIAMFETOL
  5. DICYCLOMINE HYDROCHLORIDE [Concomitant]
     Active Substance: DICYCLOMINE HYDROCHLORIDE
  6. FERROUS SULFATE [Concomitant]
     Active Substance: FERROUS SULFATE
  7. VIVELLE-DOT [Concomitant]
     Active Substance: ESTRADIOL
  8. PEPCID [Concomitant]
     Active Substance: FAMOTIDINE
  9. MICROLET [ETHINYLESTRADIOL;GESTODENE] [Concomitant]
  10. ATROPINE\DIPHENOXYLATE [Concomitant]
     Active Substance: ATROPINE\DIPHENOXYLATE
  11. DIAZEPAM [Concomitant]
     Active Substance: DIAZEPAM
  12. CROMOLYN SODIUM [Concomitant]
     Active Substance: CROMOLYN SODIUM
  13. CETIRIZINE HCL [Concomitant]
     Active Substance: CETIRIZINE HYDROCHLORIDE
  14. WAKIX [Concomitant]
     Active Substance: PITOLISANT HYDROCHLORIDE
  15. VITAMIN D3 [Concomitant]
     Active Substance: CHOLECALCIFEROL
  16. VITAMIN B12 [Concomitant]
     Active Substance: CYANOCOBALAMIN
  17. VENTOLIN [Concomitant]
     Active Substance: ALBUTEROL SULFATE
  18. VENLAFAXINE HCL [Concomitant]
     Active Substance: VENLAFAXINE HYDROCHLORIDE
  19. UBRELVY [Concomitant]
     Active Substance: UBROGEPANT
  20. TIZANIDINE HYDROCHLORIDE [Concomitant]
     Active Substance: TIZANIDINE HYDROCHLORIDE
  21. PROPRANOLOL HYDROCHLORIDE [Concomitant]
     Active Substance: PROPRANOLOL HYDROCHLORIDE
  22. PRAZOSIN HYDROCHLORIDE [Concomitant]
     Active Substance: PRAZOSIN HYDROCHLORIDE
  23. OZEMPIC [Concomitant]
     Active Substance: SEMAGLUTIDE
  24. MONTELUKAST SODIUM [Concomitant]
     Active Substance: MONTELUKAST SODIUM
  25. METFORMIN HYDROCHLORIDE [Concomitant]
     Active Substance: METFORMIN HYDROCHLORIDE
  26. LAMOTRIGINE [Concomitant]
     Active Substance: LAMOTRIGINE
  27. HYDROXYCHLOROQUINE SULFATE [Concomitant]
     Active Substance: HYDROXYCHLOROQUINE SULFATE
  28. GABAPENTIN [Concomitant]
     Active Substance: GABAPENTIN
  29. ESTRADIOL [Concomitant]
     Active Substance: ESTRADIOL
  30. EPINEPHRINE [Concomitant]
     Active Substance: EPINEPHRINE
  31. CLONAZEPAM [Concomitant]
     Active Substance: CLONAZEPAM
  32. BUPROPION HYDROCHLORIDE XL [Concomitant]
     Active Substance: BUPROPION HYDROCHLORIDE
  33. AZELASTINE HYDROCHLORIDE [Concomitant]
     Active Substance: AZELASTINE HYDROCHLORIDE
  34. ARIPIPRAZOLE [Concomitant]
     Active Substance: ARIPIPRAZOLE
  35. ADVAIR HFA [Concomitant]
     Active Substance: FLUTICASONE PROPIONATE\SALMETEROL XINAFOATE

REACTIONS (1)
  - Migraine [Unknown]
